FAERS Safety Report 9003193 (Version 2)
Quarter: 2013Q1

REPORT INFORMATION
  Report Type: Spontaneous
  Country: US (occurrence: US)
  Receive Date: 20130108
  Receipt Date: 20130128
  Transmission Date: 20140127
  Serious: Yes (Other)
  Sender: FDA-Public Use
  Company Number: US-JNJFOC-20130101700

PATIENT
  Age: 52 Year
  Sex: Female
  Weight: 54 kg

DRUGS (7)
  1. NICOTROL INHALER [Suspect]
     Indication: SMOKING CESSATION THERAPY
     Route: 055
  2. SEROQUEL [Concomitant]
     Indication: ANXIETY
     Route: 065
  3. VALIUM [Concomitant]
     Indication: ANXIETY
     Route: 065
  4. MINIPRESS [Concomitant]
     Indication: POST-TRAUMATIC STRESS DISORDER
     Route: 065
  5. MINIPRESS [Concomitant]
     Indication: POST-TRAUMATIC STRESS DISORDER
     Route: 065
  6. MINIPRESS [Concomitant]
     Indication: SLEEP TERROR
     Route: 065
  7. MINIPRESS [Concomitant]
     Indication: SLEEP TERROR
     Route: 065

REACTIONS (4)
  - Emphysema [Unknown]
  - Panic disorder [Unknown]
  - Anxiety [Unknown]
  - Blood sodium decreased [Unknown]
